FAERS Safety Report 18380602 (Version 1)
Quarter: 2020Q4

REPORT INFORMATION
  Report Type: Spontaneous
  Country: GB (occurrence: GB)
  Receive Date: 20201013
  Receipt Date: 20201013
  Transmission Date: 20210114
  Serious: Yes (Other)
  Sender: FDA-Public Use
  Company Number: GB-AUROBINDO-AUR-APL-2020-051646

PATIENT
  Age: 25 Year
  Sex: Male

DRUGS (1)
  1. MIRTAZAPINE FILM-COATED TABLET [Suspect]
     Active Substance: MIRTAZAPINE
     Indication: PRODUCT USED FOR UNKNOWN INDICATION
     Dosage: 45 MILLIGRAM (ONE TO BE TAKEN ONCE A DAY FOR TWO WEEKS AND THEN 2 FOR TWO WEEKS)
     Route: 048

REACTIONS (4)
  - Anxiety [Unknown]
  - Product dispensing error [Unknown]
  - Tachycardia [Unknown]
  - Accidental overdose [Unknown]
